FAERS Safety Report 4697724-8 (Version None)
Quarter: 2005Q2

REPORT INFORMATION
  Report Type: 
  Country: None (occurrence: None)
  Receive Date: 20050621
  Receipt Date: 20050621
  Transmission Date: 20051028
  Serious: Yes (Hospitalization)
  Sender: FDA-Public Use
  Company Number: None

PATIENT
  Age: 72 Year
  Sex: Male
  Weight: 53.2 kg

DRUGS (1)
  1. WARFARIN , 5 MG [Suspect]
     Indication: ATRIAL FIBRILLATION
     Dosage: 5 MG PO FRI 2.5 MG PO AND OTHER DAYS
     Route: 048
     Dates: start: 20041220, end: 20050113

REACTIONS (3)
  - HAEMOGLOBIN DECREASED [None]
  - HAEMOPTYSIS [None]
  - INTERNATIONAL NORMALISED RATIO INCREASED [None]
